FAERS Safety Report 7333287-6 (Version None)
Quarter: 2011Q1

REPORT INFORMATION
  Report Type: 
  Country: None (occurrence: None)
  Receive Date: 20110304
  Receipt Date: 20110221
  Transmission Date: 20110831
  Serious: Yes (Death)
  Sender: FDA-Public Use
  Company Number: US-ELI_LILLY_AND_COMPANY-US201101006519

PATIENT
  Sex: Male
  Weight: 92.971 kg

DRUGS (4)
  1. ZYPREXA [Suspect]
     Dosage: 5 MG, EACH EVENING
     Route: 048
  2. CELEXA [Concomitant]
     Indication: MAJOR DEPRESSION
  3. ZYPREXA [Suspect]
     Indication: MAJOR DEPRESSION
     Dosage: 7.5 MG, EACH EVENING
     Route: 048
     Dates: start: 20101202
  4. ALCOHOL [Concomitant]

REACTIONS (2)
  - COMPLETED SUICIDE [None]
  - OFF LABEL USE [None]
